FAERS Safety Report 9984330 (Version 1)
Quarter: 2014Q1

REPORT INFORMATION
  Report Type: Spontaneous
  Country: US (occurrence: US)
  Receive Date: 20140304
  Receipt Date: 20140304
  Transmission Date: 20141002
  Serious: No
  Sender: FDA-Public Use
  Company Number: US-ABBVIE-13P-163-1089990-00

PATIENT
  Age: 63 Year
  Sex: Female
  Weight: 65.83 kg

DRUGS (2)
  1. HUMIRA [Suspect]
     Indication: PSORIASIS
     Dosage: 06-MAY-2013
     Dates: start: 20130506
  2. HUMIRA [Suspect]
     Dates: start: 20130514, end: 20130514

REACTIONS (3)
  - Injection site pain [Not Recovered/Not Resolved]
  - Wrong technique in drug usage process [Unknown]
  - Incorrect dose administered [Unknown]
